FAERS Safety Report 8478088-0 (Version None)
Quarter: 2012Q2

REPORT INFORMATION
  Report Type: 
  Country: None (occurrence: None)
  Receive Date: 20120402
  Receipt Date: 20120220
  Transmission Date: 20120825
  Serious: Yes (Other)
  Sender: FDA-Public Use
  Company Number: 316174USA

PATIENT
  Sex: Male

DRUGS (1)
  1. LEVETIRACETAM [Suspect]
     Dosage: (500 MG)

REACTIONS (3)
  - DIZZINESS [None]
  - MYOCLONUS [None]
  - CONVULSION [None]
